FAERS Safety Report 17954951 (Version 1)
Quarter: 2020Q2

REPORT INFORMATION
  Report Type: Spontaneous
  Country: CA (occurrence: CA)
  Receive Date: 20200629
  Receipt Date: 20200629
  Transmission Date: 20200714
  Serious: Yes (Hospitalization, Other)
  Sender: FDA-Public Use
  Company Number: CA-AKCEA THERAPEUTICS-2020IS001222

PATIENT

DRUGS (8)
  1. TEA, GREEN [Concomitant]
     Active Substance: GREEN TEA LEAF
     Indication: PRODUCT USED FOR UNKNOWN INDICATION
     Dosage: 400 MG, QD
     Route: 048
  2. VITAMINS WITH MINERALS [Concomitant]
     Active Substance: MINERALS\VITAMINS
     Indication: VITAMIN SUPPLEMENTATION
     Dosage: UNK
     Dates: start: 201801, end: 201807
  3. GABAPENTIN. [Concomitant]
     Active Substance: GABAPENTIN
     Indication: PAIN
     Dosage: 400 MG, QD
     Route: 048
  4. GABAPENTIN. [Concomitant]
     Active Substance: GABAPENTIN
     Indication: NEURALGIA
  5. RABEPRAZOLE [Concomitant]
     Active Substance: RABEPRAZOLE
     Indication: GASTROOESOPHAGEAL REFLUX DISEASE
     Dosage: 10 MG, BID
     Route: 048
  6. TEGSEDI [Suspect]
     Active Substance: INOTERSEN SODIUM
     Indication: HEREDITARY NEUROPATHIC AMYLOIDOSIS
     Dosage: 284 MG, QW
     Route: 058
     Dates: start: 201803
  7. VITAMIN A                          /00056001/ [Concomitant]
     Active Substance: RETINOL
     Indication: VITAMIN A DEFICIENCY
     Dosage: UNK
     Dates: start: 201807
  8. DIFLUNISAL. [Concomitant]
     Active Substance: DIFLUNISAL
     Indication: AMYLOIDOSIS
     Dosage: 500 MG, BID
     Route: 048
     Dates: start: 201711

REACTIONS (6)
  - Vitrectomy [Unknown]
  - Chills [Not Recovered/Not Resolved]
  - Eye disorder [Unknown]
  - Blood creatine phosphokinase increased [Unknown]
  - Fatigue [Recovered/Resolved]
  - Vitamin A decreased [Unknown]
